FAERS Safety Report 7277712-8 (Version None)
Quarter: 2011Q1

REPORT INFORMATION
  Report Type: 
  Country: None (occurrence: None)
  Receive Date: 20110207
  Receipt Date: 20110202
  Transmission Date: 20110831
  Serious: No
  Sender: FDA-Public Use
  Company Number: US-PFIZER INC-2011024384

PATIENT
  Sex: Male
  Weight: 63.492 kg

DRUGS (1)
  1. ADVIL [Suspect]
     Indication: SINUS DISORDER
     Dosage: 200 MG, ONCE IN FOUR HOURS AS NEEDED
     Route: 048
     Dates: start: 20110125, end: 20110126

REACTIONS (1)
  - DRUG INEFFECTIVE [None]
